FAERS Safety Report 6430671-X (Version None)
Quarter: 2009Q4

REPORT INFORMATION
  Report Type: 
  Country: None (occurrence: None)
  Receive Date: 20091106
  Receipt Date: 20091029
  Transmission Date: 20100525
  Serious: Yes (Other)
  Sender: FDA-Public Use
  Company Number: B0601951A

PATIENT
  Sex: Female
  Weight: 84 kg

DRUGS (3)
  1. ZINACEF [Suspect]
     Indication: PROPHYLAXIS
     Route: 042
     Dates: start: 20060914, end: 20060914
  2. NEXIUM [Suspect]
     Indication: PROPHYLAXIS
     Dosage: 20MG PER DAY
     Route: 048
     Dates: start: 20060914, end: 20060929
  3. IBRUPROFEN [Suspect]
     Dosage: 600MG THREE TIMES PER DAY
     Route: 048
     Dates: start: 20060914, end: 20060929

REACTIONS (15)
  - BODY TEMPERATURE INCREASED [None]
  - CHILLS [None]
  - CHOLESTATIC LIVER INJURY [None]
  - DRUG ERUPTION [None]
  - ENANTHEMA [None]
  - ERYTHEMA [None]
  - FAECES PALE [None]
  - HEPATOCELLULAR INJURY [None]
  - HYPERBILIRUBINAEMIA [None]
  - JAUNDICE CHOLESTATIC [None]
  - MIXED LIVER INJURY [None]
  - PAIN OF SKIN [None]
  - PRURITUS [None]
  - RASH [None]
  - TRANSAMINASES INCREASED [None]
